FAERS Safety Report 10213459 (Version 1)
Quarter: 2014Q2

REPORT INFORMATION
  Report Type: Spontaneous
  Country: US (occurrence: None)
  Receive Date: 20140530
  Receipt Date: 20140530
  Transmission Date: 20141212
  Serious: Yes (Hospitalization)
  Sender: FDA-Public Use
  Company Number: None

PATIENT
  Age: 74 Year
  Sex: Male
  Weight: 84.82 kg

DRUGS (1)
  1. IPILIMUMAB (YERVOY) [Suspect]
     Indication: METASTATIC MALIGNANT MELANOMA
     Route: 042
     Dates: start: 20140415

REACTIONS (4)
  - Joint swelling [None]
  - Fall [None]
  - Cellulitis [None]
  - Asthenia [None]
